FAERS Safety Report 5257680-0 (Version None)
Quarter: 2007Q1

REPORT INFORMATION
  Report Type: 
  Country: None (occurrence: None)
  Receive Date: 20070307
  Receipt Date: 20070228
  Transmission Date: 20070707
  Serious: Yes (Other)
  Sender: FDA-Public Use
  Company Number: 2006UW11156

PATIENT
  Age: 41 Year
  Sex: Female
  Weight: 81.8 kg

DRUGS (2)
  1. SEROQUEL [Suspect]
     Indication: DEPRESSION
     Route: 048
     Dates: end: 20060101
  2. ZYPREXA [Suspect]

REACTIONS (2)
  - DIABETES MELLITUS [None]
  - PANCREATITIS [None]
